FAERS Safety Report 11701180 (Version 1)
Quarter: 2015Q4

REPORT INFORMATION
  Report Type: Spontaneous
  Country: NO (occurrence: NO)
  Receive Date: 20151105
  Receipt Date: 20151105
  Transmission Date: 20160304
  Serious: Yes (Hospitalization, Disabling)
  Sender: FDA-Public Use
  Company Number: NO-JNJFOC-20151104144

PATIENT
  Age: 74 Year
  Sex: Male

DRUGS (12)
  1. METOPROLOL TARTRATE. [Concomitant]
     Active Substance: METOPROLOL TARTRATE
     Route: 048
  2. XARELTO [Suspect]
     Active Substance: RIVAROXABAN
     Indication: ATRIAL FIBRILLATION
     Route: 048
     Dates: start: 2015
  3. FOLIC ACID. [Concomitant]
     Active Substance: FOLIC ACID
     Route: 048
  4. XARELTO [Suspect]
     Active Substance: RIVAROXABAN
     Indication: CEREBROVASCULAR ACCIDENT PROPHYLAXIS
     Route: 048
     Dates: start: 2015
  5. ZOPICLON [Concomitant]
     Active Substance: ZOPICLONE
     Route: 048
  6. SIMVASTATIN. [Concomitant]
     Active Substance: SIMVASTATIN
     Route: 048
  7. VENLAFAXINE [Concomitant]
     Active Substance: VENLAFAXINE HYDROCHLORIDE
     Route: 048
  8. RAMIPRIL A [Concomitant]
     Active Substance: RAMIPRIL
     Route: 048
  9. OMNIC [Concomitant]
     Active Substance: TAMSULOSIN HYDROCHLORIDE
     Route: 048
  10. BURINEX [Concomitant]
     Active Substance: BUMETANIDE
     Indication: DIURETIC THERAPY
     Route: 048
  11. METHOTREXATE [Concomitant]
     Active Substance: METHOTREXATE
     Route: 048
  12. REMERON [Concomitant]
     Active Substance: MIRTAZAPINE
     Route: 048

REACTIONS (2)
  - Drug effect incomplete [Recovering/Resolving]
  - Ophthalmic vein thrombosis [Recovering/Resolving]

NARRATIVE: CASE EVENT DATE: 20150921
